FAERS Safety Report 25346219 (Version 2)
Quarter: 2025Q2

REPORT INFORMATION
  Report Type: Spontaneous
  Country: US (occurrence: US)
  Receive Date: 20250522
  Receipt Date: 20250602
  Transmission Date: 20250716
  Serious: Yes (Death, Life-Threatening, Disabling, Other)
  Sender: BRISTOL-MYERS SQUIBB COMPANY
  Company Number: US-BRISTOL-MYERS SQUIBB COMPANY-2025-073747

PATIENT
  Age: 54 Year
  Sex: Female

DRUGS (2)
  1. ELIQUIS [Suspect]
     Active Substance: APIXABAN
     Indication: Atrial fibrillation
     Route: 048
  2. ELIQUIS [Suspect]
     Active Substance: APIXABAN
     Indication: Pulmonary embolism

REACTIONS (1)
  - Cardiorenal syndrome [Fatal]

NARRATIVE: CASE EVENT DATE: 20250515
